FAERS Safety Report 24800454 (Version 1)
Quarter: 2025Q1

REPORT INFORMATION
  Report Type: Spontaneous
  Country: US (occurrence: None)
  Receive Date: 20250101
  Receipt Date: 20250101
  Transmission Date: 20250409
  Serious: Yes (Other)
  Sender: FDA-CTU
  Company Number: None

PATIENT
  Age: 70 Year
  Sex: Female
  Weight: 52.2 kg

DRUGS (3)
  1. LEQVIO [Suspect]
     Active Substance: INCLISIRAN SODIUM
     Indication: Blood cholesterol increased
     Route: 030
  2. ISOSORBIDE [Concomitant]
     Active Substance: ISOSORBIDE
  3. MULTI [Concomitant]

REACTIONS (2)
  - Bronchitis [None]
  - Pulmonary embolism [None]

NARRATIVE: CASE EVENT DATE: 20241226
